FAERS Safety Report 10147427 (Version 1)
Quarter: 2014Q2

REPORT INFORMATION
  Report Type: Report from Study
  Country: BR (occurrence: BR)
  Receive Date: 20140501
  Receipt Date: 20140501
  Transmission Date: 20141212
  Serious: Yes (Other)
  Sender: FDA-Public Use
  Company Number: BR-BIOMARINAP-BR-2014-103138

PATIENT
  Age: 42 Year
  Sex: Female

DRUGS (1)
  1. ALDURAZYME [Suspect]
     Indication: MUCOPOLYSACCHARIDOSIS I
     Dosage: 1.2 MG/KG, QOW
     Route: 042
     Dates: start: 201005

REACTIONS (5)
  - Glaucoma [Recovering/Resolving]
  - Visual acuity reduced [Unknown]
  - Cardiac disorder [Unknown]
  - Eye infection [Unknown]
  - Eye pain [Unknown]
